FAERS Safety Report 7025076-7 (Version None)
Quarter: 2010Q4

REPORT INFORMATION
  Report Type: 
  Country: None (occurrence: None)
  Receive Date: 20101001
  Receipt Date: 20100922
  Transmission Date: 20110411
  Serious: Yes (Hospitalization)
  Sender: FDA-Public Use
  Company Number: US-ABBOTT-10P-163-0672585-00

PATIENT
  Sex: Male
  Weight: 86.26 kg

DRUGS (11)
  1. HUMIRA [Suspect]
     Indication: PSORIASIS
     Dates: start: 20090201, end: 20090601
  2. HUMIRA [Suspect]
     Dates: start: 20100701
  3. CLONAZEPAM [Concomitant]
     Indication: INSOMNIA
  4. METOPROLOL TARTRATE [Concomitant]
     Indication: HYPERTENSION
  5. LYRICA [Concomitant]
     Indication: PAIN IN EXTREMITY
  6. FERROUS-GLUC [Concomitant]
     Indication: PRODUCT USED FOR UNKNOWN INDICATION
  7. SPIRONOLACTONE [Concomitant]
     Indication: FLUID RETENTION
  8. CULTURELLE [Concomitant]
     Indication: DYSPEPSIA
  9. VITAMIN D [Concomitant]
     Indication: BONE DISORDER
  10. HUMALOG [Concomitant]
     Indication: DIABETES MELLITUS
  11. LEVEMIR [Concomitant]
     Indication: DIABETES MELLITUS

REACTIONS (5)
  - BLOOD POTASSIUM INCREASED [None]
  - HAEMORRHAGE [None]
  - PRURITUS [None]
  - SCAB [None]
  - SKIN ULCER [None]
